FAERS Safety Report 22133334 (Version 2)
Quarter: 2023Q2

REPORT INFORMATION
  Report Type: Spontaneous
  Country: US (occurrence: US)
  Receive Date: 20230324
  Receipt Date: 20230417
  Transmission Date: 20230721
  Serious: No
  Sender: FDA-Public Use
  Company Number: US-AMGEN-USASP2023048484

PATIENT
  Age: 86 Year
  Sex: Male

DRUGS (4)
  1. REPATHA [Suspect]
     Active Substance: EVOLOCUMAB
     Indication: Coronary artery disease
     Dosage: 140 MILLIGRAM, Q2WK
     Route: 065
  2. REPATHA [Suspect]
     Active Substance: EVOLOCUMAB
     Indication: Dyslipidaemia
  3. REPATHA [Suspect]
     Active Substance: EVOLOCUMAB
     Indication: Cardiac operation
  4. REPATHA [Suspect]
     Active Substance: EVOLOCUMAB
     Indication: Cerebrovascular accident

REACTIONS (2)
  - Memory impairment [Unknown]
  - Accidental exposure to product [Unknown]

NARRATIVE: CASE EVENT DATE: 20230201
